FAERS Safety Report 4330365-0 (Version None)
Quarter: 2004Q1

REPORT INFORMATION
  Report Type: 
  Country: None (occurrence: None)
  Receive Date: 20040329
  Receipt Date: 20040316
  Transmission Date: 20041129
  Serious: Yes (Hospitalization)
  Sender: FDA-Public Use
  Company Number: BE-JNJFOC-20040201559

PATIENT
  Age: 69 Year
  Sex: Female

DRUGS (2)
  1. PROPULSID [Suspect]
     Indication: IMPAIRED GASTRIC EMPTYING
     Dosage: 10 MG, 3 IN 1 DAY
     Route: 048
     Dates: start: 20030101, end: 20040125
  2. MOVICOL (NULYTELY) [Concomitant]
     Route: 048

REACTIONS (2)
  - DOLICHOCOLON ACQUIRED [None]
  - FAECALOMA [None]
